FAERS Safety Report 10172686 (Version 2)
Quarter: 2014Q2

REPORT INFORMATION
  Report Type: Spontaneous
  Country: DK (occurrence: DK)
  Receive Date: 20140515
  Receipt Date: 20140620
  Transmission Date: 20141212
  Serious: Yes (Hospitalization, Congenital Anomaly)
  Sender: FDA-Public Use
  Company Number: DK-ASTRAZENECA-2014SE31150

PATIENT
  Age: 0 Day
  Sex: Female
  Weight: 13 kg

DRUGS (2)
  1. RHINOCORT TURBUHALER [Suspect]
     Indication: SEASONAL ALLERGY
     Route: 063
     Dates: start: 20120426
  2. FLIXOTIDE DISKUS [Suspect]
     Indication: ASTHMA
     Dosage: PARALLELIMPORT AF FLIXOTIDE GSK DOSE: 2-3
     Route: 063
     Dates: start: 20120426

REACTIONS (3)
  - Exposure during breast feeding [Unknown]
  - Type 1 diabetes mellitus [Not Recovered/Not Resolved]
  - Maternal drugs affecting foetus [None]
